FAERS Safety Report 24810217 (Version 1)
Quarter: 2025Q1

REPORT INFORMATION
  Report Type: Spontaneous
  Country: US (occurrence: None)
  Receive Date: 20250104
  Receipt Date: 20250104
  Transmission Date: 20250409
  Serious: Yes (Other)
  Sender: FDA-CTU
  Company Number: None

PATIENT
  Age: 26 Year
  Sex: Female
  Weight: 61.2 kg

DRUGS (12)
  1. 7-HYDROXYMITRAGYNINE [Suspect]
     Active Substance: 7-HYDROXYMITRAGYNINE
     Indication: Feeling of relaxation
     Dosage: .5 CHEWABLE DAILY ORAL
     Route: 048
     Dates: start: 20231201, end: 20240103
  2. 7-HYDROXYMITRAGYNINE [Suspect]
     Active Substance: 7-HYDROXYMITRAGYNINE
     Indication: Disturbance in attention
  3. ADDERALL [Concomitant]
     Active Substance: AMPHETAMINE ASPARTATE\AMPHETAMINE SULFATE\DEXTROAMPHETAMINE SACCHARATE\DEXTROAMPHETAMINE SULFATE
  4. ADDERALL XR [Concomitant]
     Active Substance: AMPHETAMINE ASPARTATE\AMPHETAMINE SULFATE\DEXTROAMPHETAMINE SACCHARATE\DEXTROAMPHETAMINE SULFATE
  5. XANAX [Concomitant]
     Active Substance: ALPRAZOLAM
  6. Dayvigo + Clonidine for sleep [Concomitant]
  7. YAZ [Concomitant]
     Active Substance: DROSPIRENONE\ETHINYL ESTRADIOL
  8. capsule a day of all: Mushroom Blend (Lions Mane, Turkey tail, Reishi [Concomitant]
  9. Magnesium CitraMate [Concomitant]
  10. VITAMIN C [Concomitant]
     Active Substance: ASCORBIC ACID
  11. 5-Hydroxytrytophan [Concomitant]
  12. VITAMINS [Concomitant]
     Active Substance: VITAMINS

REACTIONS (8)
  - Withdrawal syndrome [None]
  - Adverse drug reaction [None]
  - Temperature regulation disorder [None]
  - Insomnia [None]
  - Skin hyperpigmentation [None]
  - Brain fog [None]
  - Depression [None]
  - Dependence [None]

NARRATIVE: CASE EVENT DATE: 20240104
